FAERS Safety Report 16937430 (Version 1)
Quarter: 2019Q4

REPORT INFORMATION
  Report Type: Spontaneous
  Country: JP (occurrence: JP)
  Receive Date: 20191018
  Receipt Date: 20191018
  Transmission Date: 20200122
  Serious: Yes (Hospitalization)
  Sender: FDA-Public Use
  Company Number: JP-ASTRAZENECA-2019SF47873

PATIENT
  Age: 1 Year
  Sex: Male

DRUGS (3)
  1. PULMICORT RESPULES [Suspect]
     Active Substance: BUDESONIDE
     Dosage: DOSE UNKNOWN
     Route: 055
  2. MEPTIN [Concomitant]
     Active Substance: PROCATEROL HYDROCHLORIDE
     Dosage: DOSE UNKNOWN
     Route: 065
  3. INTAL [Concomitant]
     Active Substance: CROMOLYN SODIUM
     Dosage: DOSE UNKNOWN
     Route: 065

REACTIONS (2)
  - Asthma [Unknown]
  - Product formulation issue [Unknown]
